FAERS Safety Report 10270268 (Version 1)
Quarter: 2014Q2

REPORT INFORMATION
  Report Type: Spontaneous
  Country: GB (occurrence: None)
  Receive Date: 20140627
  Receipt Date: 20140627
  Transmission Date: 20141212
  Serious: Yes (Life-Threatening, Hospitalization)
  Sender: FDA-Public Use
  Company Number: AUR-APL-2014-06733

PATIENT
  Age: 89 Year
  Sex: Female

DRUGS (12)
  1. RAMIPRIL 1.25 MG (RAMIPRIL) UNKNOWN, 1.25MG [Suspect]
     Indication: PRODUCT USED FOR UNKNOWN INDICATION
     Route: 048
  2. ADCAL D3 (CALCIUM CARBONATE, COLECALCIFEROL) [Concomitant]
  3. ASPIRIN (ACETYLSALICYLIC ACID) [Concomitant]
  4. ATENOLOL (ATENOLOL) [Concomitant]
  5. FERROUS FUMARATE (FERROUS FUMARATE) [Concomitant]
  6. FOLIC ACID (FOLIC ACID) [Concomitant]
  7. FUROSEMDIE (FUROSEMIDE) [Concomitant]
  8. LAXIDO (ELECTROLYTES NOS, MACROGOL 3350) [Concomitant]
  9. LEVOTHYROXINE (LEVOTHYROXINE) [Concomitant]
  10. OMPERAZOLE (OMEPRAZOLE) [Concomitant]
  11. QUININE SULPHATE (QUININE SULFATE) [Concomitant]
  12. SPIRONOLATONE (SPIRONOLACTONE) [Concomitant]

REACTIONS (3)
  - Angioedema [None]
  - Unresponsive to stimuli [None]
  - Respiratory disorder [None]
